FAERS Safety Report 6251671-9 (Version None)
Quarter: 2009Q2

REPORT INFORMATION
  Report Type: 
  Country: None (occurrence: None)
  Receive Date: 20090630
  Receipt Date: 20090618
  Transmission Date: 20091009
  Serious: Yes (Hospitalization)
  Sender: FDA-Public Use
  Company Number: FR-ELI_LILLY_AND_COMPANY-FR200903003246

PATIENT
  Age: 83 Year
  Sex: Female
  Weight: 53 kg

DRUGS (2)
  1. FORTEO [Suspect]
     Indication: OSTEOPOROSIS
     Dosage: 20 UG, DAILY (1/D)
     Route: 058
     Dates: start: 20081019
  2. NEXEN [Concomitant]
     Dosage: UNK, 2/D
     Route: 048

REACTIONS (2)
  - HYPONATRAEMIA [None]
  - OEDEMA [None]
